FAERS Safety Report 5961071-4 (Version None)
Quarter: 2008Q4

REPORT INFORMATION
  Report Type: 
  Country: None (occurrence: None)
  Receive Date: 20081119
  Receipt Date: 20081113
  Transmission Date: 20090506
  Serious: Yes (Other)
  Sender: FDA-Public Use
  Company Number: A0756934A

PATIENT
  Sex: Female

DRUGS (1)
  1. UREA PEROXIDE [Suspect]
     Indication: DRUG USE FOR UNKNOWN INDICATION
     Dosage: AURAL
     Route: 001

REACTIONS (2)
  - DEAFNESS UNILATERAL [None]
  - EAR DISCOMFORT [None]
